FAERS Safety Report 22151451 (Version 1)
Quarter: 2023Q1

REPORT INFORMATION
  Report Type: Spontaneous
  Country: US (occurrence: None)
  Receive Date: 20230329
  Receipt Date: 20230329
  Transmission Date: 20230417
  Serious: No
  Sender: FDA-Public Use
  Company Number: US-ROCHE-3319923

PATIENT
  Age: 62 Year
  Sex: Male

DRUGS (1)
  1. OCREVUS [Suspect]
     Active Substance: OCRELIZUMAB
     Indication: Relapsing multiple sclerosis
     Dosage: INFUSION 2 WAS DUE LAST WEDNESDAY (WHICH ACCORDING TO MY MSL CALENDAR WOULD BE MARCH 22, 2023).
     Route: 042

REACTIONS (1)
  - COVID-19 [Recovered/Resolved]
